FAERS Safety Report 9441958 (Version 2)
Quarter: 2013Q3

REPORT INFORMATION
  Report Type: Spontaneous
  Country: US (occurrence: US)
  Receive Date: 20130806
  Receipt Date: 20130821
  Transmission Date: 20140515
  Serious: No
  Sender: FDA-Public Use
  Company Number: US-009507513-1308USA002079

PATIENT
  Sex: Female

DRUGS (1)
  1. CLARITIN-D-24 [Suspect]
     Indication: OTITIS EXTERNA
     Dosage: UNK, ONCE
     Route: 048
     Dates: start: 20130730

REACTIONS (3)
  - Wrong technique in drug usage process [Unknown]
  - Drug ineffective for unapproved indication [Unknown]
  - Off label use [Unknown]
